FAERS Safety Report 20350859 (Version 1)
Quarter: 2022Q1

REPORT INFORMATION
  Report Type: Report from Study
  Country: JP (occurrence: JP)
  Receive Date: 20220119
  Receipt Date: 20220119
  Transmission Date: 20220423
  Serious: Yes (Hospitalization)
  Sender: FDA-Public Use
  Company Number: JP-Eisai-202110683_BOLD-LF_C_1

PATIENT
  Age: 60 Year
  Sex: Female
  Weight: 65 kg

DRUGS (23)
  1. ERIBULIN [Suspect]
     Active Substance: ERIBULIN
     Indication: Small cell lung cancer
     Route: 041
     Dates: start: 20211223, end: 202201
  2. NIVOLUMAB [Suspect]
     Active Substance: NIVOLUMAB
     Indication: Small cell lung cancer
     Route: 041
     Dates: start: 20211223, end: 202201
  3. BETAHISTINE MESILATE [Concomitant]
     Active Substance: BETAHISTINE MESILATE
     Route: 048
  4. PRANLUKAST [Concomitant]
     Active Substance: PRANLUKAST
     Indication: Sputum increased
     Route: 048
  5. FUDOSTEINE [Concomitant]
     Active Substance: FUDOSTEINE
     Indication: Sputum increased
     Dates: end: 20211210
  6. SIMVASTATIN [Concomitant]
     Active Substance: SIMVASTATIN
     Dates: end: 20211210
  7. CANDESARTAN CILEXETIL [Concomitant]
     Active Substance: CANDESARTAN CILEXETIL
  8. VONOPRAZAN FUMARATE [Concomitant]
     Active Substance: VONOPRAZAN FUMARATE
     Indication: Prophylaxis
     Dates: start: 20210430
  9. DEXAMETHASONE SODIUM PHOSPHATE [Concomitant]
     Active Substance: DEXAMETHASONE SODIUM PHOSPHATE
     Indication: Prophylaxis of nausea and vomiting
  10. DIPHENHYDRAMINE HYDROCHLORIDE [Concomitant]
     Active Substance: DIPHENHYDRAMINE HYDROCHLORIDE
     Indication: Prophylaxis
  11. PEGFILGRASTIM [Concomitant]
     Active Substance: PEGFILGRASTIM
     Indication: Prophylaxis
  12. AMBROXOL HYDROCHLORIDE [Concomitant]
     Active Substance: AMBROXOL HYDROCHLORIDE
     Indication: Sputum increased
     Dates: start: 20211211
  13. ATORVASTATIN [Concomitant]
     Active Substance: ATORVASTATIN
     Dates: start: 20211211
  14. TRAMCET [Concomitant]
     Active Substance: ACETAMINOPHEN\TRAMADOL
     Dates: start: 20211119
  15. ZOMETA [Concomitant]
     Active Substance: ZOLEDRONIC ACID
     Indication: Prophylaxis
  16. VOLTAREN [Concomitant]
     Active Substance: DICLOFENAC SODIUM
     Dates: start: 20211119, end: 20211222
  17. VOLTAREN [Concomitant]
     Active Substance: DICLOFENAC SODIUM
     Dates: start: 20211223
  18. NAUZELIN [Concomitant]
     Active Substance: DOMPERIDONE
     Dates: start: 20211223
  19. MAGNESIUM OXIDE [Concomitant]
     Active Substance: MAGNESIUM OXIDE
     Dates: start: 20211223
  20. SENNOSIDES [Concomitant]
     Active Substance: SENNOSIDES
     Dates: start: 20211223
  21. LEVOFLOXACIN [Concomitant]
     Active Substance: LEVOFLOXACIN
     Dates: start: 20211229, end: 20220104
  22. SODIUM GUALENATE MONOHYDRATE [Concomitant]
     Active Substance: SODIUM GUALENATE MONOHYDRATE
     Dates: start: 20211228
  23. DIMETHYL ISOPROPYLAZULENE [Concomitant]
     Dates: start: 20211228

REACTIONS (1)
  - Decreased appetite [Recovered/Resolved]

NARRATIVE: CASE EVENT DATE: 20211224
